FAERS Safety Report 23663042 (Version 2)
Quarter: 2024Q1

REPORT INFORMATION
  Report Type: Other
  Country: US (occurrence: None)
  Receive Date: 20240322
  Receipt Date: 20240328
  Transmission Date: 20240410
  Serious: Yes (Death)
  Sender: FDA-Public Use
  Company Number: US-ROCHE-3530581

PATIENT
  Age: 74 Year
  Sex: Male

DRUGS (12)
  1. ESBRIET [Suspect]
     Active Substance: PIRFENIDONE
     Indication: Idiopathic pulmonary fibrosis
     Dosage: TAKE 1 TABLET BY MOUTH 3 TIMES A DAY
     Route: 048
     Dates: start: 20221014, end: 20240201
  2. ESBRIET [Suspect]
     Active Substance: PIRFENIDONE
     Indication: Pulmonary fibrosis
     Dosage: TAKE ONE (267 MG) TABLET BY MOUTH THREE TIMES DAILY WEEK 1, THEN TWO (267 MG) TABLETS THREE TIMES DA
     Route: 048
     Dates: start: 20230308
  3. ESBRIET [Suspect]
     Active Substance: PIRFENIDONE
     Dosage: TAKE 1 TABLET BY MOUTH 3 TIMES A DAY
     Route: 048
     Dates: start: 20230117
  4. ALBUTEROL [Concomitant]
     Active Substance: ALBUTEROL
     Dosage: PROVENTIL HPA 90 MCG/INH MDI)?2 PUFFS FOUR TIMES A DAY AS NEEDED
     Route: 055
     Dates: start: 20220705
  5. ASPIRIN [Concomitant]
     Active Substance: ASPIRIN
     Route: 048
     Dates: start: 20220705
  6. ATORVASTATIN [Concomitant]
     Active Substance: ATORVASTATIN
     Route: 048
     Dates: start: 20220705
  7. CLOPIDOGREL [Concomitant]
     Active Substance: CLOPIDOGREL BISULFATE
     Route: 048
     Dates: start: 20220705
  8. TRELEGY ELLIPTA [Concomitant]
     Active Substance: FLUTICASONE FUROATE\UMECLIDINIUM BROMIDE\VILANTEROL TRIFENATATE
     Dosage: 100 MCG-62.5 MCG-25 MCG/INH INHALATION POWDER)? 1 PUFF DAILY
     Route: 055
     Dates: start: 20220705
  9. LANSOPRAZOLE [Concomitant]
     Active Substance: LANSOPRAZOLE
     Dosage: TAKE ONE (1) CAPSULE BY MOUTH EVERY DAY 1/2 HOUR PRIOR TO A MEAL FOR ACID REFLUX
     Route: 048
     Dates: start: 20220705
  10. NITROGLYCERIN [Concomitant]
     Active Substance: NITROGLYCERIN
     Dosage: ONE BY MOUTH AL EVERY 5 MINUTES X3 AS NEEDED CHEST PAIN
     Route: 048
     Dates: start: 20220705
  11. PREDNISONE [Concomitant]
     Active Substance: PREDNISONE
     Dosage: 4 (40MG) PO DAYE 1 THRU 7, TEHN 3 (30NG) PO DAYS 6 THRU 14, THEN 2 (20MG) PO DAYS 15 THRU 21 THEN 1
     Route: 048
     Dates: start: 20221128
  12. OXYGEN [Concomitant]
     Active Substance: OXYGEN
     Dosage: OXYGEN, 4 TO 6 LITER WITH EXERCIS
     Dates: start: 20220705

REACTIONS (1)
  - Death [Fatal]

NARRATIVE: CASE EVENT DATE: 20240320
